FAERS Safety Report 11644404 (Version 2)
Quarter: 2015Q4

REPORT INFORMATION
  Report Type: Report from Study
  Country: US (occurrence: US)
  Receive Date: 20151020
  Receipt Date: 20151027
  Transmission Date: 20160304
  Serious: Yes (Other)
  Sender: FDA-Public Use
  Company Number: US-JNJFOC-20150820874

PATIENT
  Age: 33 Year
  Sex: Female

DRUGS (2)
  1. NEXIUM [Concomitant]
     Active Substance: ESOMEPRAZOLE MAGNESIUM
     Indication: COLITIS ULCERATIVE
     Route: 065
  2. REMICADE [Suspect]
     Active Substance: INFLIXIMAB
     Indication: COLITIS ULCERATIVE
     Dosage: LATEST INFUSION WAS ON 11-AUG-2015.??FREQUENCY -(6-8 WEEKS)
     Route: 042
     Dates: start: 2015

REACTIONS (9)
  - Feeling hot [Recovered/Resolved]
  - Dizziness [Recovered/Resolved]
  - Cerebral disorder [Recovering/Resolving]
  - Infusion related reaction [Unknown]
  - Rash [Recovering/Resolving]
  - Abdominal pain upper [Not Recovered/Not Resolved]
  - Chest discomfort [Recovered/Resolved]
  - Cough [Recovered/Resolved]
  - Heart rate increased [Recovered/Resolved]

NARRATIVE: CASE EVENT DATE: 201508
